FAERS Safety Report 5595784-3 (Version None)
Quarter: 2008Q1

REPORT INFORMATION
  Report Type: 
  Country: None (occurrence: None)
  Receive Date: 20080118
  Receipt Date: 20080115
  Transmission Date: 20080703
  Serious: Yes (Death)
  Sender: FDA-Public Use
  Company Number: B0503319A

PATIENT
  Age: 64 Year
  Sex: Male

DRUGS (4)
  1. EPZICOM [Suspect]
     Indication: HIV INFECTION
     Route: 048
     Dates: start: 20070616, end: 20070620
  2. LEXIVA [Suspect]
     Indication: HIV INFECTION
     Route: 048
     Dates: start: 20070616, end: 20070626
  3. NORVIR [Suspect]
     Indication: HIV INFECTION
     Route: 048
     Dates: start: 20070616, end: 20070620
  4. PENICILLIN G POTASSIUM [Concomitant]
     Indication: NEUROSYPHILIS
     Dates: start: 20070614, end: 20070621

REACTIONS (2)
  - IMMUNE RECONSTITUTION SYNDROME [None]
  - PNEUMOCYSTIS JIROVECI PNEUMONIA [None]
